FAERS Safety Report 17921543 (Version 2)
Quarter: 2020Q3

REPORT INFORMATION
  Report Type: Report from Study
  Country: None (occurrence: BR)
  Receive Date: 20200622
  Receipt Date: 20200708
  Transmission Date: 20201103
  Serious: Yes (Other)
  Sender: FDA-Public Use
  Company Number: BR-BIOVITRUM-2020BR3244

PATIENT
  Age: 1 Year
  Sex: Female
  Weight: 8 kg

DRUGS (1)
  1. SYNAGIS [Suspect]
     Active Substance: PALIVIZUMAB
     Indication: HEART DISEASE CONGENITAL
     Dosage: 1.2 ML
     Route: 065
     Dates: start: 20200409

REACTIONS (8)
  - Hypophagia [Not Recovered/Not Resolved]
  - Crying [Unknown]
  - Drug hypersensitivity [Unknown]
  - Hypothermia [Recovering/Resolving]
  - Hordeolum [Unknown]
  - Discomfort [Unknown]
  - Immunodeficiency [Unknown]
  - T-lymphocyte count decreased [Unknown]

NARRATIVE: CASE EVENT DATE: 2020
